FAERS Safety Report 7433679-0 (Version None)
Quarter: 2011Q2

REPORT INFORMATION
  Report Type: 
  Country: None (occurrence: None)
  Receive Date: 20110422
  Receipt Date: 20110408
  Transmission Date: 20111010
  Serious: Yes (Hospitalization)
  Sender: FDA-Public Use
  Company Number: AU-GENENTECH-228632

PATIENT
  Sex: Female

DRUGS (6)
  1. SALBUTAMOL SULFATE [Concomitant]
     Indication: PRODUCT USED FOR UNKNOWN INDICATION
     Dosage: 100 A?G, UNK
  2. XOLAIR [Suspect]
     Indication: ASTHMA
     Dosage: 150 MG, UNKNOWN
     Dates: start: 20060718, end: 20060718
  3. SYMBICORT [Concomitant]
     Indication: PRODUCT USED FOR UNKNOWN INDICATION
     Dosage: UNK A?G, UNK
  4. XOLAIR [Suspect]
     Dosage: 300 MG, UNKNOWN
     Dates: start: 20060801, end: 20060801
  5. RHINOCORT [Concomitant]
     Indication: PRODUCT USED FOR UNKNOWN INDICATION
  6. CONTINUOUS POSITIVE AIRWAY PRESSURE [Concomitant]
     Indication: PRODUCT USED FOR UNKNOWN INDICATION

REACTIONS (7)
  - SYNCOPE [None]
  - ANAPHYLACTIC REACTION [None]
  - ALTERED STATE OF CONSCIOUSNESS [None]
  - NAUSEA [None]
  - MALAISE [None]
  - TACHYCARDIA [None]
  - HYPOTENSION [None]
